FAERS Safety Report 24716710 (Version 1)
Quarter: 2024Q4

REPORT INFORMATION
  Report Type: Spontaneous
  Country: US (occurrence: None)
  Receive Date: 20241210
  Receipt Date: 20241210
  Transmission Date: 20250115
  Serious: No
  Sender: Public
  Company Number: None

PATIENT
  Sex: Female
  Weight: 61.2 kg

DRUGS (2)
  1. PONATINIB HYDROCHLORIDE [Suspect]
     Active Substance: PONATINIB HYDROCHLORIDE
     Dates: end: 20230414
  2. PREDNISONE [Suspect]
     Active Substance: PREDNISONE
     Dates: end: 20230414

REACTIONS (1)
  - Blood pressure systolic decreased [None]

NARRATIVE: CASE EVENT DATE: 20230414
